FAERS Safety Report 10653701 (Version 2)
Quarter: 2014Q4

REPORT INFORMATION
  Report Type: Spontaneous
  Country: CH (occurrence: CH)
  Receive Date: 20141216
  Receipt Date: 20141223
  Transmission Date: 20150529
  Serious: Yes (Hospitalization)
  Sender: FDA-Public Use
  Company Number: CH-PFIZER INC-2014342304

PATIENT
  Age: 85 Year
  Sex: Male

DRUGS (9)
  1. DERMOVATE [Concomitant]
     Active Substance: CLOBETASOL
     Dosage: UNK
     Dates: start: 20131101
  2. TAXOTERE [Interacting]
     Active Substance: DOCETAXEL
     Indication: PROSTATE CANCER
     Dosage: 140 MG, EVERY 3 WEEKS
     Route: 040
     Dates: start: 20141021
  3. SINTROM [Concomitant]
     Active Substance: ACENOCOUMAROL
     Dosage: UNK
  4. VALSARTAN. [Concomitant]
     Active Substance: VALSARTAN
     Indication: HYPERTENSION
     Dosage: UNK
  5. CORDARONE [Suspect]
     Active Substance: AMIODARONE HYDROCHLORIDE
     Indication: ATRIAL FIBRILLATION
     Dosage: 200 MG, DAILY
     Route: 048
  6. BELOC [Concomitant]
     Active Substance: METOPROLOL TARTRATE
     Indication: HYPERTENSION
     Dosage: UNK
  7. ALLOPURINOL. [Interacting]
     Active Substance: ALLOPURINOL
     Dosage: 100 MG, DAILY
     Route: 048
  8. BICALUTAMIDE. [Concomitant]
     Active Substance: BICALUTAMIDE
     Indication: PROSTATE CANCER
     Dosage: UNK
  9. NEULASTA [Concomitant]
     Active Substance: PEGFILGRASTIM
     Indication: PROSTATE CANCER
     Dosage: UNK
     Dates: start: 20141021

REACTIONS (2)
  - Drug interaction [Recovered/Resolved]
  - Drug eruption [Recovered/Resolved]

NARRATIVE: CASE EVENT DATE: 20141026
